FAERS Safety Report 8698211 (Version 2)
Quarter: 2013Q4

REPORT INFORMATION
  Report Type: Spontaneous
  Country: GB (occurrence: GB)
  Receive Date: 20120802
  Receipt Date: 20131105
  Transmission Date: 20140711
  Serious: Yes (Other)
  Sender: FDA-Public Use
  Company Number: GB-MSD-1207GBR012288

PATIENT
  Sex: Female

DRUGS (6)
  1. FOSAMAX [Suspect]
     Dosage: 75 MG, QW
     Dates: start: 2005
  2. ASPIRIN [Concomitant]
     Indication: THROMBOSIS PROPHYLAXIS
     Dosage: 75 MG, UNK
  3. ATENOLOL [Concomitant]
     Indication: HYPERTENSION
     Dosage: 50 MG, UNK
  4. OMEPRAZOLE [Concomitant]
  5. PARACETAMOL TABLETS BP [Concomitant]
  6. VOLTAROL [Concomitant]

REACTIONS (1)
  - Hip fracture [Not Recovered/Not Resolved]
